FAERS Safety Report 14604274 (Version 1)
Quarter: 2018Q1

REPORT INFORMATION
  Report Type: Spontaneous
  Country: DE (occurrence: DE)
  Receive Date: 20180306
  Receipt Date: 20180306
  Transmission Date: 20180509
  Serious: Yes (Hospitalization)
  Sender: FDA-Public Use
  Company Number: DE-TEVA-2018-DE-863380

PATIENT
  Sex: Female
  Weight: 105 kg

DRUGS (7)
  1. FLUOROURACIL. [Suspect]
     Active Substance: FLUOROURACIL
     Indication: RECTAL ADENOCARCINOMA
     Dosage: LAST ADMINISTRATION BEFORE ONSET: 08-JUL-2015
     Route: 042
     Dates: start: 20150428
  2. AFLIBERCEPT [Concomitant]
     Active Substance: AFLIBERCEPT
     Dosage: ON DAY 1,15,29
     Route: 065
  3. IRINOMEDAC [Concomitant]
     Indication: RECTAL ADENOCARCINOMA
     Dosage: LAST ADMINISTRATION BEFORE ONSET: 07-JUL-2015
     Route: 042
     Dates: start: 20150428
  4. ATROPINE. [Concomitant]
     Active Substance: ATROPINE
     Indication: PREMEDICATION
     Dosage: 1/2 VIAL
     Route: 058
  5. RIBOSETRON [Concomitant]
     Active Substance: GRANISETRON HYDROCHLORIDE
     Indication: PREMEDICATION
     Route: 065
  6. ONCOFOLIC [Concomitant]
     Active Substance: FOLATE SODIUM
     Indication: RECTAL ADENOCARCINOMA
     Dosage: LAST ADMINISTRATION BEFORE ONSET: 07-JUL-2015
     Route: 042
     Dates: start: 20150428
  7. AFLIBERCEPT [Concomitant]
     Active Substance: AFLIBERCEPT
     Route: 065
     Dates: end: 20150707

REACTIONS (1)
  - Gastrointestinal haemorrhage [Recovered/Resolved]

NARRATIVE: CASE EVENT DATE: 20150713
